FAERS Safety Report 15267752 (Version 2)
Quarter: 2018Q4

REPORT INFORMATION
  Report Type: Spontaneous
  Country: JP (occurrence: JP)
  Receive Date: 20180811
  Receipt Date: 20181219
  Transmission Date: 20190204
  Serious: Yes (Hospitalization, Other)
  Sender: FDA-Public Use
  Company Number: JP-UCBSA-2018035229

PATIENT
  Age: 60 Year
  Sex: Female

DRUGS (11)
  1. XYZAL [Suspect]
     Active Substance: LEVOCETIRIZINE DIHYDROCHLORIDE
     Indication: OFF LABEL USE
  2. PREDONINE [Suspect]
     Active Substance: PREDNISOLONE
     Indication: ASTHMA
     Dosage: 2.5 MG, QD, MORNING
     Route: 048
  3. SPIRIVA [Concomitant]
     Active Substance: TIOTROPIUM BROMIDE MONOHYDRATE
     Indication: ASTHMA
     Dosage: 5 ?G, QD
  4. ALFACALCIDOL [Concomitant]
     Active Substance: ALFACALCIDOL
     Indication: ASTHMA
     Dosage: 0.5 ?G, QD, MORNING
  5. MEPOLIZUMAB [Suspect]
     Active Substance: MEPOLIZUMAB
     Indication: ASTHMA
     Dosage: 100 MG, UNK
     Route: 058
     Dates: start: 20180612
  6. RABEPRAZOLE SODIUM. [Concomitant]
     Active Substance: RABEPRAZOLE SODIUM
     Indication: ASTHMA
     Dosage: 10 MG, BID, IN THE MORNING AND EVENING
  7. TRAMCET [Concomitant]
     Active Substance: ACETAMINOPHEN\TRAMADOL
     Indication: ASTHMA
     Dosage: 1 DF, BID, IN THE MORNING AND EVENING
  8. FLUTIFORM [Concomitant]
     Active Substance: FLUTICASONE PROPIONATE\FORMOTEROL FUMARATE
     Indication: ASTHMA
     Dosage: 250 ?G, BID
  9. CLARITHROMYCIN. [Concomitant]
     Active Substance: CLARITHROMYCIN
     Indication: ASTHMA
     Dosage: 200 MG, BID, IN THE MORNING AND EVENING
  10. XYZAL [Suspect]
     Active Substance: LEVOCETIRIZINE DIHYDROCHLORIDE
     Indication: ASTHMA
     Dosage: 5 MG, BID
     Route: 048
  11. REBAMIPIDE [Concomitant]
     Active Substance: REBAMIPIDE
     Indication: ASTHMA
     Dosage: 100 MG, BID, IN THE MORNING AND EVENING

REACTIONS (6)
  - Inappropriate schedule of product administration [Unknown]
  - Pneumonia [Recovering/Resolving]
  - Infection susceptibility increased [Unknown]
  - Condition aggravated [Unknown]
  - Off label use [Unknown]
  - Pyrexia [Recovering/Resolving]

NARRATIVE: CASE EVENT DATE: 20180623
